FAERS Safety Report 17353232 (Version 1)
Quarter: 2020Q1

REPORT INFORMATION
  Report Type: Spontaneous
  Country: US (occurrence: US)
  Receive Date: 20200131
  Receipt Date: 20200131
  Transmission Date: 20200409
  Serious: Yes (Other)
  Sender: FDA-Public Use
  Company Number: US-STRIDES ARCOLAB LIMITED-2019SP013516

PATIENT
  Age: 48 Year
  Sex: Male

DRUGS (4)
  1. PRAMOXINE [Suspect]
     Active Substance: PRAMOXINE
     Indication: HUMAN POLYOMAVIRUS INFECTION
     Dosage: UNK
     Route: 065
  2. CYPROHEPTADINE. [Suspect]
     Active Substance: CYPROHEPTADINE
     Indication: HUMAN POLYOMAVIRUS INFECTION
     Dosage: UNK
     Route: 065
  3. DOXEPIN [Suspect]
     Active Substance: DOXEPIN
     Indication: HUMAN POLYOMAVIRUS INFECTION
     Dosage: UNK
     Route: 065
  4. TRIAMCINOLONE [Concomitant]
     Active Substance: TRIAMCINOLONE
     Indication: HUMAN POLYOMAVIRUS INFECTION
     Dosage: UNK
     Route: 065

REACTIONS (1)
  - Drug ineffective [Unknown]
